FAERS Safety Report 7676432-5 (Version None)
Quarter: 2011Q3

REPORT INFORMATION
  Report Type: 
  Country: None (occurrence: None)
  Receive Date: 20110811
  Receipt Date: 20090811
  Transmission Date: 20111222
  Serious: Yes (Death)
  Sender: FDA-Public Use
  Company Number: US-BAYER-200926925NA

PATIENT
  Age: 41 Year
  Sex: Female
  Weight: 84 kg

DRUGS (24)
  1. COUMADIN [Concomitant]
  2. LEXAPRO [Concomitant]
  3. PLAQUENIL [Concomitant]
  4. PHOSLO [Concomitant]
  5. ZOLOFT [Concomitant]
  6. CALCIUM CARBONATE [Concomitant]
  7. MAGNEVIST [Suspect]
     Indication: PRODUCT USED FOR UNKNOWN INDICATION
     Dosage: 40 ML, UNK
     Route: 042
     Dates: start: 20030916, end: 20030916
  8. CLONAZEPAM [Concomitant]
  9. RENAGEL [Concomitant]
  10. URSO 250 [Concomitant]
  11. OMNISCAN [Suspect]
     Indication: PRODUCT USED FOR UNKNOWN INDICATION
     Dosage: 20 ML, UNK
     Route: 042
     Dates: start: 20041103, end: 20041103
  12. LIPITOR [Concomitant]
  13. CHOLESTYRAMINE [Concomitant]
  14. MEGACE [Concomitant]
  15. TRENTAL [Concomitant]
  16. ATENOLOL [Concomitant]
  17. ATARAX [Concomitant]
  18. ZETIA [Concomitant]
  19. ACTIGALL [Concomitant]
  20. EPOGEN [Concomitant]
  21. MAGNEVIST [Suspect]
     Dosage: 20 ML
     Route: 042
     Dates: start: 20040108
  22. OMNISCAN [Suspect]
     Indication: MAGNETIC RESONANCE CHOLANGIOPANCREATOGRAPHY
     Dosage: UNK
     Dates: start: 20031103
  23. MAGNEVIST [Suspect]
     Dates: start: 20050108, end: 20050108
  24. EPOGEN [Concomitant]

REACTIONS (3)
  - SKIN FIBROSIS [None]
  - NEPHROGENIC SYSTEMIC FIBROSIS [None]
  - PAIN [None]
